FAERS Safety Report 25421400 (Version 1)
Quarter: 2025Q2

REPORT INFORMATION
  Report Type: Spontaneous
  Country: US (occurrence: US)
  Receive Date: 20250611
  Receipt Date: 20250611
  Transmission Date: 20250716
  Serious: No
  Sender: GRIFOLS
  Company Number: US-IGSA-BIG0035649

PATIENT
  Age: 6 Year
  Sex: Male
  Weight: 19.3 kg

DRUGS (21)
  1. GAMUNEX-C [Suspect]
     Active Substance: HUMAN IMMUNOGLOBULIN G
     Indication: Product used for unknown indication
     Route: 042
     Dates: start: 20221114
  2. GAMUNEX-C [Suspect]
     Active Substance: HUMAN IMMUNOGLOBULIN G
     Route: 042
     Dates: start: 20250528, end: 20250528
  3. ACETAMINOPHEN [Concomitant]
     Active Substance: ACETAMINOPHEN
  4. DIPHENHYDRAMINE [Concomitant]
     Active Substance: DIPHENHYDRAMINE
     Route: 048
     Dates: start: 20250528, end: 20250528
  5. SODIUM CHLORIDE [Concomitant]
     Active Substance: SODIUM CHLORIDE
  6. METHYLPREDNISOLONE SODIUM SUCCINATE [Concomitant]
     Active Substance: METHYLPREDNISOLONE SODIUM SUCCINATE
  7. HEPARIN SODIUM [Concomitant]
     Active Substance: HEPARIN SODIUM
  8. ASPIRIN [Concomitant]
     Active Substance: ASPIRIN
     Dosage: 40 MILLIGRAM, QD
     Route: 048
     Dates: start: 20250512
  9. ATOVAQUONE [Concomitant]
     Active Substance: ATOVAQUONE
     Dosage: 3.3 MILLILITER, QD
     Route: 048
     Dates: start: 20250219
  10. CITRIC ACID MONOHYDRATE\SODIUM CITRATE [Concomitant]
     Active Substance: CITRIC ACID MONOHYDRATE\SODIUM CITRATE
     Dosage: 10 MILLILITER, TID
     Route: 048
     Dates: start: 20250219
  11. FLUTICASONE PROPIONATE [Concomitant]
     Active Substance: FLUTICASONE PROPIONATE
  12. PROBIOTICS NOS [Concomitant]
     Active Substance: PROBIOTICS NOS
     Dates: start: 20250430, end: 20250530
  13. LIDOCAINE [Concomitant]
     Active Substance: LIDOCAINE
     Route: 061
     Dates: start: 20250121
  14. LOSARTAN [Concomitant]
     Active Substance: LOSARTAN
     Dosage: 3 MILLILITER, BID
     Route: 048
     Dates: start: 20241022
  15. MYCOPHENOLIC ACID [Concomitant]
     Active Substance: MYCOPHENOLIC ACID
     Dosage: 1.1 MILLILITER, BID
     Dates: start: 20240607
  16. NYSTATIN [Concomitant]
     Active Substance: NYSTATIN
     Dosage: 5 MILLILITER, TID
     Route: 048
     Dates: start: 20250219
  17. ONDANSETRON [Concomitant]
     Active Substance: ONDANSETRON
     Dosage: 8 MILLIGRAM, QD
     Route: 048
     Dates: start: 20250429
  18. PANTOPRAZOLE [Concomitant]
     Active Substance: PANTOPRAZOLE
     Dosage: 10 MILLILITER, QD
     Route: 048
     Dates: start: 20250321
  19. PREDNISOLONE [Concomitant]
     Active Substance: PREDNISOLONE
     Dosage: 0.7 MILLILITER, QD
     Route: 048
     Dates: start: 20250509
  20. TACROLIMUS [Concomitant]
     Active Substance: TACROLIMUS
     Dates: start: 20250516
  21. VALGANCICLOVIR [Concomitant]
     Active Substance: VALGANCICLOVIR
     Dosage: 4 MILLILITER, BID
     Route: 048
     Dates: start: 20250219

REACTIONS (4)
  - Pruritus [Recovering/Resolving]
  - Urticaria [Recovering/Resolving]
  - Erythema [Recovering/Resolving]
  - Swollen tongue [Recovering/Resolving]

NARRATIVE: CASE EVENT DATE: 20250528
